FAERS Safety Report 19251992 (Version 1)
Quarter: 2021Q2

REPORT INFORMATION
  Report Type: Spontaneous
  Country: CA (occurrence: CA)
  Receive Date: 20210513
  Receipt Date: 20210513
  Transmission Date: 20210717
  Serious: Yes (Death)
  Sender: FDA-Public Use
  Company Number: CA-TEVA-2021-CA-1909891

PATIENT
  Age: 63 Year
  Sex: Male

DRUGS (10)
  1. BUPRENORPHINE /NALOXONE [Suspect]
     Active Substance: BUPRENORPHINE\NALOXONE
     Dosage: 8 MILLIGRAM DAILY;
     Route: 060
  2. PANTOPRAZOLE [Concomitant]
     Active Substance: PANTOPRAZOLE
  3. VARENICLINE (CHAMPIX TABLET) [Concomitant]
  4. BUPRENORPHINE /NALOXONE [Suspect]
     Active Substance: BUPRENORPHINE\NALOXONE
     Dosage: 8 MILLIGRAM DAILY;
     Route: 060
  5. BUPRENORPHINE /NALOXONE [Suspect]
     Active Substance: BUPRENORPHINE\NALOXONE
     Dosage: 4 MILLIGRAM DAILY;
     Route: 060
  6. CELECOXIB. [Suspect]
     Active Substance: CELECOXIB
     Indication: PAIN
     Route: 048
  7. BUPRENORPHINE /NALOXONE [Suspect]
     Active Substance: BUPRENORPHINE\NALOXONE
     Indication: DRUG USE DISORDER
     Dosage: 2 MILLIGRAM DAILY;
     Route: 060
  8. LORAZEPAM. [Concomitant]
     Active Substance: LORAZEPAM
  9. TENOFOVIR [Concomitant]
     Active Substance: TENOFOVIR
  10. BUPRENORPHINE /NALOXONE [Suspect]
     Active Substance: BUPRENORPHINE\NALOXONE
     Dosage: 6 MILLIGRAM DAILY;
     Route: 060

REACTIONS (1)
  - Death [Fatal]
